FAERS Safety Report 9314747 (Version 3)
Quarter: 2013Q3

REPORT INFORMATION
  Report Type: Spontaneous
  Country: US (occurrence: US)
  Receive Date: 20130529
  Receipt Date: 20130701
  Transmission Date: 20140515
  Serious: No
  Sender: FDA-Public Use
  Company Number: US-VERTEX PHARMACEUTICALS INC-2013-006480

PATIENT
  Age: 58 Year
  Sex: Female
  Weight: 54 kg

DRUGS (10)
  1. INCIVEK [Suspect]
     Indication: HEPATITIS C
     Dosage: 750 MG, TID
     Route: 048
     Dates: start: 20130525, end: 20130605
  2. PEGASYS [Suspect]
     Indication: HEPATITIS C
     Dosage: 180 ?G, QW
     Route: 058
     Dates: start: 20130524, end: 20130605
  3. RIBAPAK [Suspect]
     Indication: HEPATITIS C
     Dosage: 600 MG AM, 400 MG PM, QD
     Route: 048
     Dates: start: 20130525, end: 20130605
  4. ADVIL [Concomitant]
     Dosage: 200 MG, PRN
  5. ALEVE [Concomitant]
     Dosage: 220 MG, PRN
  6. CLARITIN [Concomitant]
     Dosage: 10 MG, PRN
  7. LUXIQ [Concomitant]
     Dosage: PRN, BID
  8. MIDRIN [Concomitant]
     Dosage: 325-65-100MG, PRN
  9. PEPCID AC [Concomitant]
     Dosage: 10 MG, PRN
  10. TYLENOL [Concomitant]
     Dosage: 500 MG, PRN

REACTIONS (12)
  - Dyspnoea [Unknown]
  - Headache [Unknown]
  - Back pain [Unknown]
  - Pain [Recovered/Resolved]
  - Chills [Recovered/Resolved]
  - Weight decreased [Unknown]
  - Rash macular [Recovered/Resolved]
  - Diarrhoea [Recovered/Resolved]
  - Dysgeusia [Recovered/Resolved]
  - Nausea [Recovered/Resolved]
  - Pruritus [Recovered/Resolved]
  - Vomiting [Recovered/Resolved]
